FAERS Safety Report 22896037 (Version 2)
Quarter: 2023Q4

REPORT INFORMATION
  Report Type: Spontaneous
  Country: FR (occurrence: FR)
  Receive Date: 20230901
  Receipt Date: 20231130
  Transmission Date: 20240110
  Serious: Yes (Other)
  Sender: FDA-Public Use
  Company Number: None

PATIENT
  Age: 79 Year
  Sex: Male
  Weight: 80 kg

DRUGS (13)
  1. LINEZOLID [Suspect]
     Active Substance: LINEZOLID
     Indication: Pachymeningitis
     Dosage: 600MG X2/J
     Dates: start: 20230715, end: 20230810
  2. METRONIDAZOLE [Suspect]
     Active Substance: METRONIDAZOLE
     Indication: Pachymeningitis
     Dosage: 500MG X1/J?SOLUTION FOR INFUSION ?IVSE
     Dates: start: 20230708, end: 20230802
  3. VORICONAZOLE [Suspect]
     Active Substance: VORICONAZOLE
     Indication: Pachymeningitis
     Dosage: 320 MG OVER 2 HOURS X2/DAY? POWDER FOR SOLUTION FOR INFUSION?IVSE
     Dates: end: 20230811
  4. VORICONAZOLE [Suspect]
     Active Substance: VORICONAZOLE
     Dosage: 250 MG OVER 2 HOURS X2/DAY?POWDER FOR SOLUTION FOR INFUSION?IVSE
     Dates: start: 20230731, end: 20230808
  5. VORICONAZOLE [Suspect]
     Active Substance: VORICONAZOLE
     Dosage: 320 MG OVER 2 HOURS X2/DAY ?POWDER FOR SOLUTION FOR INFUSION?IVSE
     Dates: start: 20230726, end: 20230731
  6. VORICONAZOLE [Suspect]
     Active Substance: VORICONAZOLE
     Dosage: 250 MG OVER 2 HOURS X2/DAY?POWDER FOR SOLUTION FOR INFUSION?IVSE
     Dates: start: 20230715, end: 20230726
  7. CEFOTAXIME SODIUM [Suspect]
     Active Substance: CEFOTAXIME SODIUM
     Indication: Pachymeningitis
     Dosage: 1G X3/J?POWDER FOR SOLUTION FOR INJECTION?IM
     Dates: start: 20230708
  8. METHYLPREDNISOLONE VIATRIS 40 mg, powder for solution for injection (I [Concomitant]
     Indication: Product used for unknown indication
  9. PANTOPRAZOLE SUN PHARMA 40 mg,  powder for solution for injection (IM- [Concomitant]
     Indication: Product used for unknown indication
  10. HUMALOG KWIKPEN [Concomitant]
     Active Substance: INSULIN LISPRO
     Indication: Product used for unknown indication
  11. LOVENOX 4000 UI anti-Xa/0,4 ml, solution for injection in a pre-filled [Concomitant]
     Indication: Product used for unknown indication
  12. VITAMINE K1 CHEPLAPHARM 10 mg/1 ml, solution oral and injectable [Concomitant]
     Indication: Product used for unknown indication
  13. AMINO ACIDS\DEXTROSE\ELECTROLYTES NOS\SOYBEAN OIL [Concomitant]
     Active Substance: AMINO ACIDS\DEXTROSE\ELECTROLYTES NOS\SOYBEAN OIL
     Indication: Product used for unknown indication

REACTIONS (1)
  - Hepatic cytolysis [Recovered/Resolved]

NARRATIVE: CASE EVENT DATE: 20230806
